FAERS Safety Report 4525829-0 (Version None)
Quarter: 2004Q4

REPORT INFORMATION
  Report Type: 
  Country: None (occurrence: None)
  Receive Date: 20041213
  Receipt Date: 20041207
  Transmission Date: 20050328
  Serious: Yes (Other)
  Sender: FDA-Public Use
  Company Number: US-MERCK-0412USA00909

PATIENT
  Age: 62 Year
  Sex: Female

DRUGS (2)
  1. FOSAMAX [Suspect]
     Route: 048
  2. ESTROGENS (UNSPECIFIED) [Concomitant]
     Route: 065

REACTIONS (2)
  - BLINDNESS UNILATERAL [None]
  - UVEITIS [None]
